FAERS Safety Report 8493125-5 (Version None)
Quarter: 2012Q3

REPORT INFORMATION
  Report Type: 
  Country: None (occurrence: None)
  Receive Date: 20120706
  Receipt Date: 20120626
  Transmission Date: 20120928
  Serious: Yes (Hospitalization, Other)
  Sender: FDA-Public Use
  Company Number: US-ACTELION-A-US2012-66484

PATIENT

DRUGS (2)
  1. EPOPROSTENOL SODIUM [Suspect]
     Indication: PULMONARY ARTERIAL HYPERTENSION
     Dosage: 34 NG/KG, PER MIN
     Route: 042
     Dates: start: 20090101
  2. SILDENAFIL [Concomitant]

REACTIONS (3)
  - CULTURE POSITIVE [None]
  - DEVICE RELATED INFECTION [None]
  - CENTRAL VENOUS CATHETERISATION [None]
